FAERS Safety Report 8777494 (Version 2)
Quarter: 2012Q4

REPORT INFORMATION
  Report Type: 
  Country: DK (occurrence: FR)
  Receive Date: 20120911
  Receipt Date: 20121210
  Transmission Date: 20130627
  Serious: Yes (Other)
  Sender: FDA-Public Use
  Company Number: FR-FRI-1000038454

PATIENT
  Sex: Female
  Weight: 68 kg

DRUGS (2)
  1. ESCITALOPRAM [Suspect]
     Indication: DEPRESSION
     Dosage: 10 mg
     Route: 048
     Dates: start: 201110
  2. MYCOSTER [Concomitant]
     Indication: ONYCHOMYCOSIS
     Dosage: 3 DF
     Route: 048
     Dates: start: 201205

REACTIONS (2)
  - Vitreous haemorrhage [Recovering/Resolving]
  - Retinal haemorrhage [Recovering/Resolving]
